FAERS Safety Report 4769855-5 (Version None)
Quarter: 2005Q3

REPORT INFORMATION
  Report Type: 
  Country: None (occurrence: None)
  Receive Date: 20050912
  Receipt Date: 20050623
  Transmission Date: 20060218
  Serious: No
  Sender: FDA-Public Use
  Company Number: 2005-01373

PATIENT
  Age: 28 Year
  Sex: Female

DRUGS (2)
  1. VELCADE [Suspect]
     Indication: MULTIPLE MYELOMA
  2. DEXAMETHASONE [Suspect]
     Indication: MULTIPLE MYELOMA

REACTIONS (3)
  - FLUID RETENTION [None]
  - PAIN [None]
  - RASH [None]
